FAERS Safety Report 9040744 (Version 4)
Quarter: 2013Q2

REPORT INFORMATION
  Report Type: Spontaneous
  Country: JP (occurrence: JP)
  Receive Date: 20130129
  Receipt Date: 20130408
  Transmission Date: 20140414
  Serious: Yes (Hospitalization)
  Sender: FDA-Public Use
  Company Number: JP-ABBOTT-13P-087-1035017-00

PATIENT
  Age: 11 Year
  Sex: Female
  Weight: 32 kg

DRUGS (5)
  1. KLARICID [Suspect]
     Indication: MYCOPLASMA INFECTION
     Dates: start: 19980319
  2. KLARICID [Suspect]
     Route: 048
     Dates: start: 20120319
  3. KEISHIKASHAKUYAKUDAIOTO [Suspect]
     Indication: NASOPHARYNGITIS
     Dates: start: 19980316
  4. KEISHIKASHAKUYAKUDAIOTO [Suspect]
     Route: 048
     Dates: start: 20120316
  5. SHOSAIKOTO [Suspect]
     Indication: HEPATIC FUNCTION ABNORMAL
     Route: 048
     Dates: start: 20120407

REACTIONS (3)
  - Interstitial lung disease [Recovered/Resolved]
  - Hepatic function abnormal [Recovered/Resolved]
  - Malaise [Recovered/Resolved]
